FAERS Safety Report 7658796-1 (Version None)
Quarter: 2011Q3

REPORT INFORMATION
  Report Type: 
  Country: None (occurrence: None)
  Receive Date: 20110805
  Receipt Date: 20110805
  Transmission Date: 20111222
  Serious: No
  Sender: FDA-Public Use
  Company Number: None

PATIENT
  Sex: Female
  Weight: 51.709 kg

DRUGS (2)
  1. LORAZEPAM [Concomitant]
     Indication: ANXIETY
     Dosage: 0.5MG
     Route: 048
  2. AZASPIRONE [Suspect]
     Indication: ANXIETY
     Dosage: 15MG
     Route: 048

REACTIONS (5)
  - AGITATION [None]
  - DRUG INEFFECTIVE [None]
  - PANIC ATTACK [None]
  - ANXIETY [None]
  - NERVOUSNESS [None]
